FAERS Safety Report 7161684-0 (Version None)
Quarter: 2010Q4

REPORT INFORMATION
  Report Type: 
  Country: None (occurrence: None)
  Receive Date: 20101201
  Receipt Date: 20101116
  Transmission Date: 20110411
  Serious: Yes (Hospitalization)
  Sender: FDA-Public Use
  Company Number: PHHY2010JP71062

PATIENT
  Age: 64 Year
  Sex: Female
  Weight: 51 kg

DRUGS (7)
  1. TERNELIN (TIZANIDINE HYDROCHLORIDE) UNKNOWN, 3 MG [Suspect]
     Indication: MUSCLE SPASMS
     Dosage: 3 MG,QD ORAL
     Route: 048
     Dates: start: 20081007
  2. SYMMETREL [Suspect]
     Indication: VASCULAR PARKINSONISM
     Dosage: 100 MG, QD ORAL ; 50 MG, QD;ORAL
     Route: 048
     Dates: start: 20100801, end: 20101018
  3. SYMMETREL [Suspect]
     Indication: VASCULAR PARKINSONISM
     Dosage: 100 MG, QD ORAL ; 50 MG, QD;ORAL
     Route: 048
     Dates: start: 20101018, end: 20101028
  4. LIORESAL [Concomitant]
  5. CLONAZEPAM [Concomitant]
  6. CANDESARTAN CILEXETIL [Concomitant]
  7. JUVELA (TOCOPHERYL NICOTINATE) [Concomitant]

REACTIONS (5)
  - CEREBRAL INFARCTION [None]
  - CONDITION AGGRAVATED [None]
  - DISUSE SYNDROME [None]
  - VASCULAR PARKINSONISM [None]
  - WHITE BLOOD CELL COUNT DECREASED [None]
